FAERS Safety Report 24622726 (Version 2)
Quarter: 2024Q4

REPORT INFORMATION
  Report Type: Spontaneous
  Country: US (occurrence: US)
  Receive Date: 20241115
  Receipt Date: 20241219
  Transmission Date: 20250115
  Serious: Yes (Hospitalization, Other)
  Sender: MERCK
  Company Number: US-009507513-2411USA003696

PATIENT
  Sex: Male

DRUGS (1)
  1. JANUMET XR [Suspect]
     Active Substance: METFORMIN HYDROCHLORIDE\SITAGLIPTIN PHOSPHATE
     Indication: Type 2 diabetes mellitus
     Dosage: 50/1000MG/ONCE DAILY
     Route: 048

REACTIONS (13)
  - Respiration abnormal [Not Recovered/Not Resolved]
  - Lung neoplasm malignant [Unknown]
  - Cough [Unknown]
  - Dysphagia [Unknown]
  - Bronchial disorder [Unknown]
  - Cardiac disorder [Unknown]
  - Hypertension [Unknown]
  - Vomiting [Unknown]
  - Retching [Unknown]
  - Product use complaint [Unknown]
  - Product coating issue [Unknown]
  - Poor quality product administered [Unknown]
  - Product dose omission issue [Unknown]

NARRATIVE: CASE EVENT DATE: 20240101
